FAERS Safety Report 4947366-1 (Version None)
Quarter: 2006Q1

REPORT INFORMATION
  Report Type: 
  Country: None (occurrence: None)
  Receive Date: 20060317
  Receipt Date: 20051006
  Transmission Date: 20060701
  Serious: Yes (Hospitalization)
  Sender: FDA-Public Use
  Company Number: US-MERCK-0510USA05839

PATIENT
  Age: 65 Year
  Sex: Male
  Weight: 93 kg

DRUGS (21)
  1. FLEXERIL [Concomitant]
     Indication: MUSCLE SPASMS
     Route: 048
  2. NITROSTAT [Concomitant]
     Route: 060
  3. TYLENOL (CAPLET) [Concomitant]
     Indication: HEADACHE
     Route: 065
  4. NITROGLYCERIN [Concomitant]
     Route: 061
  5. CARDOTEK-30 [Concomitant]
     Route: 065
  6. PREVACID [Concomitant]
     Route: 048
  7. ALTACE [Concomitant]
     Route: 048
  8. ALTACE [Concomitant]
     Route: 048
  9. TOPROL-XL [Concomitant]
     Route: 065
  10. PEPCID [Concomitant]
     Route: 048
  11. PLAVIX [Concomitant]
     Route: 048
  12. ASPIRIN [Concomitant]
     Route: 048
  13. LIPITOR [Suspect]
     Indication: HYPERLIPIDAEMIA
     Route: 048
     Dates: start: 20010501, end: 20010601
  14. CLONAZEPAM [Concomitant]
     Indication: RESTLESS LEGS SYNDROME
     Route: 048
  15. NIASPAN [Concomitant]
     Route: 048
  16. VIOXX [Suspect]
     Indication: ARTHRITIS
     Route: 048
  17. ACIPHEX [Concomitant]
     Indication: GASTROOESOPHAGEAL REFLUX DISEASE
     Route: 065
  18. GUAIFENESIN [Concomitant]
     Route: 065
  19. LEVAQUIN [Suspect]
     Route: 048
  20. DIOVAN [Concomitant]
     Indication: HYPERTENSION
     Route: 048
  21. FLEXERIL [Concomitant]
     Route: 048

REACTIONS (30)
  - ACROCHORDON [None]
  - ACUTE MYOCARDIAL INFARCTION [None]
  - ACUTE SINUSITIS [None]
  - ASPARTATE AMINOTRANSFERASE INCREASED [None]
  - BRADYCARDIA [None]
  - BRONCHITIS [None]
  - CORONARY ARTERY DISEASE [None]
  - COSTOCHONDRITIS [None]
  - EAR INFECTION [None]
  - EAR PAIN [None]
  - FALL [None]
  - FLATULENCE [None]
  - GASTROENTERITIS VIRAL [None]
  - HAEMOGLOBIN DECREASED [None]
  - HEADACHE [None]
  - HYPERLIPIDAEMIA [None]
  - HYPERTENSION [None]
  - JOINT INJURY [None]
  - MELANOCYTIC NAEVUS [None]
  - MYALGIA [None]
  - PAIN IN EXTREMITY [None]
  - RHINITIS [None]
  - RHINITIS ALLERGIC [None]
  - RIB FRACTURE [None]
  - SENSATION OF PRESSURE [None]
  - SINUS HEADACHE [None]
  - STOMACH DISCOMFORT [None]
  - THROMBOCYTOPENIA [None]
  - UPPER RESPIRATORY TRACT INFECTION [None]
  - VIRAL SINUSITIS [None]
